FAERS Safety Report 6209774-0 (Version None)
Quarter: 2009Q2

REPORT INFORMATION
  Report Type: 
  Country: None (occurrence: None)
  Receive Date: 20090601
  Receipt Date: 20090520
  Transmission Date: 20091009
  Serious: Yes (Other)
  Sender: FDA-Public Use
  Company Number: FR-BAYER-200921764GPV

PATIENT
  Age: 58 Year
  Sex: Male

DRUGS (3)
  1. LEVITRA [Suspect]
     Indication: DRUG USE FOR UNKNOWN INDICATION
     Route: 065
     Dates: start: 20090101
  2. UNSPECIFIED ANTIHYPERTENSOR [Concomitant]
     Indication: HYPERTENSION
     Route: 065
  3. UNSPECIFIED TREATMENT HYPOCHOLESTEROLEMIC [Concomitant]
     Indication: HYPOCHOLESTEROLAEMIA
     Route: 065

REACTIONS (1)
  - KERATOCONJUNCTIVITIS SICCA [None]
